FAERS Safety Report 9901449 (Version 2)
Quarter: 2014Q1

REPORT INFORMATION
  Report Type: Spontaneous
  Country: US (occurrence: US)
  Receive Date: 20140217
  Receipt Date: 20140217
  Transmission Date: 20141002
  Serious: No
  Sender: FDA-Public Use
  Company Number: US-GILEAD-2011-0042703

PATIENT
  Sex: Female

DRUGS (3)
  1. LETAIRIS [Suspect]
     Indication: PULMONARY HYPERTENSION
     Route: 048
     Dates: start: 201108
  2. LETAIRIS [Suspect]
     Indication: EISENMENGER^S SYNDROME
     Route: 048
     Dates: start: 20100112, end: 20110805
  3. ADCIRCA [Concomitant]

REACTIONS (3)
  - Blood pressure decreased [Not Recovered/Not Resolved]
  - Local swelling [Unknown]
  - Oedema [Unknown]
